FAERS Safety Report 7889167-0 (Version None)
Quarter: 2011Q4

REPORT INFORMATION
  Report Type: 
  Country: None (occurrence: None)
  Receive Date: 20111101
  Receipt Date: 20111025
  Transmission Date: 20120403
  Serious: Yes (Hospitalization, Other)
  Sender: FDA-Public Use
  Company Number: 2010SP009716

PATIENT
  Age: 30 Year
  Sex: Female
  Weight: 70.7611 kg

DRUGS (7)
  1. HYDROCODONE BITARTRATE AND ACETAMINOPHEN [Concomitant]
  2. MEDROXYPROGESTERONE [Suspect]
     Indication: CONTRACEPTION
     Dates: start: 20080208
  3. CEPHALEXIN [Concomitant]
  4. TOBRADEX [Concomitant]
  5. NUVARING [Suspect]
     Indication: CONTRACEPTION
     Dosage: VAG
     Route: 067
     Dates: start: 20071203, end: 20080208
  6. NUVARING [Suspect]
     Indication: VAGINAL HAEMORRHAGE
     Dosage: VAG
     Route: 067
     Dates: start: 20071203, end: 20080208
  7. SYNTROID [Concomitant]

REACTIONS (37)
  - OPERATIVE HAEMORRHAGE [None]
  - LATEX ALLERGY [None]
  - BLOOD THYROID STIMULATING HORMONE DECREASED [None]
  - DYSFUNCTIONAL UTERINE BLEEDING [None]
  - BACK PAIN [None]
  - AUTOIMMUNE THYROIDITIS [None]
  - PHLEBITIS [None]
  - BREAST INFLAMMATION [None]
  - BREAST SWELLING [None]
  - BREAST MASS [None]
  - PULMONARY EMBOLISM [None]
  - PELVIC FLUID COLLECTION [None]
  - COCCYDYNIA [None]
  - COGNITIVE DISORDER [None]
  - BREAST FIBROSIS [None]
  - CHEST PAIN [None]
  - OVARIAN CYST [None]
  - HEAD INJURY [None]
  - HEADACHE [None]
  - DISEASE PROGRESSION [None]
  - PAIN [None]
  - MENTAL DISORDER [None]
  - PELVIC PAIN [None]
  - FALL [None]
  - FRACTURED COCCYX [None]
  - DEPRESSION [None]
  - EMOTIONAL DISORDER [None]
  - GOITRE [None]
  - NAUSEA [None]
  - MENORRHAGIA [None]
  - MULTIPLE INJURIES [None]
  - ANXIETY [None]
  - BREAST INFECTION [None]
  - INTERVERTEBRAL DISC DEGENERATION [None]
  - ACCIDENT AT WORK [None]
  - FLANK PAIN [None]
  - PHARYNGITIS [None]
